FAERS Safety Report 10448204 (Version 1)
Quarter: 2014Q3

REPORT INFORMATION
  Report Type: Spontaneous
  Country: BE (occurrence: BE)
  Receive Date: 20140911
  Receipt Date: 20140911
  Transmission Date: 20150326
  Serious: Yes (Hospitalization)
  Sender: FDA-Public Use
  Company Number: BE-PFIZER INC-2014250318

PATIENT
  Sex: Male

DRUGS (5)
  1. CRESTOR [Concomitant]
     Active Substance: ROSUVASTATIN CALCIUM
     Dosage: UNK
     Dates: start: 2004
  2. CLOPIDOGREL [Concomitant]
     Active Substance: CLOPIDOGREL BISULFATE
     Dosage: UNK
     Dates: start: 2004
  3. PANTOMED [Suspect]
     Active Substance: DEXPANTHENOL
     Indication: GASTRITIS
     Dosage: 40 MG, DAILY
     Route: 048
     Dates: start: 201310, end: 20140324
  4. PANTOMED [Suspect]
     Active Substance: DEXPANTHENOL
     Indication: HELICOBACTER TEST POSITIVE
     Dosage: 20 MG, DAILY
     Route: 048
     Dates: start: 20140325, end: 20140422
  5. CLAMOXYL [Concomitant]
     Active Substance: AMOXICILLIN\CLAVULANIC ACID
     Dosage: UNK
     Dates: start: 201311

REACTIONS (2)
  - IgA nephropathy [Recovering/Resolving]
  - Hypersensitivity vasculitis [Recovering/Resolving]

NARRATIVE: CASE EVENT DATE: 20140422
